FAERS Safety Report 5703721-3 (Version None)
Quarter: 2008Q2

REPORT INFORMATION
  Report Type: 
  Country: None (occurrence: None)
  Receive Date: 20080413
  Receipt Date: 20080407
  Transmission Date: 20081010
  Serious: Yes (Other)
  Sender: FDA-Public Use
  Company Number: PHEH2006US01838

PATIENT
  Age: 61 Year
  Sex: Female
  Weight: 59.41 kg

DRUGS (7)
  1. ZOMETA [Suspect]
     Dosage: NOT SPECIFIED
  2. AREDIA [Suspect]
     Dosage: UNK, UNK
  3. THALIDOMIDE [Concomitant]
     Indication: PLASMACYTOMA
     Dosage: UNK, UNK
  4. HYDROCHLOROTHIAZIDE [Concomitant]
     Indication: HYPERTENSION
     Dosage: 25 MG, QD
     Route: 048
  5. K-DUR [Concomitant]
     Dosage: 10 MEQ, QD
     Route: 048
  6. COZAAR [Concomitant]
     Indication: HYPERTENSION
     Dosage: 25 MG, QD
     Route: 048
  7. DECADRON [Concomitant]
     Indication: PLASMACYTOMA
     Dosage: UNK, UNK

REACTIONS (4)
  - JOINT INJURY [None]
  - KNEE ARTHROPLASTY [None]
  - LYMPHADENOPATHY [None]
  - OSTEONECROSIS [None]
